FAERS Safety Report 6225015-2 (Version None)
Quarter: 2009Q2

REPORT INFORMATION
  Report Type: 
  Country: None (occurrence: None)
  Receive Date: 20090612
  Receipt Date: 20090402
  Transmission Date: 20091009
  Serious: No
  Sender: FDA-Public Use
  Company Number: US-ABBOTT-09P-163-0566624-00

PATIENT
  Sex: Female

DRUGS (7)
  1. HUMIRA [Suspect]
     Indication: CROHN'S DISEASE
     Route: 058
     Dates: start: 20090101
  2. IMURAN [Concomitant]
     Indication: DRUG USE FOR UNKNOWN INDICATION
  3. PREDNISONE [Concomitant]
     Indication: DRUG USE FOR UNKNOWN INDICATION
  4. SYNTHROID [Concomitant]
     Indication: HYPOTHYROIDISM
  5. VITAMIN B-12 [Concomitant]
     Indication: DRUG USE FOR UNKNOWN INDICATION
  6. FOLIC ACID [Concomitant]
     Indication: DRUG USE FOR UNKNOWN INDICATION
  7. BONIVA [Concomitant]
     Indication: DRUG USE FOR UNKNOWN INDICATION

REACTIONS (2)
  - ORAL HERPES [None]
  - TOOTH DISORDER [None]
